FAERS Safety Report 7323069-3 (Version None)
Quarter: 2011Q1

REPORT INFORMATION
  Report Type: 
  Country: None (occurrence: None)
  Receive Date: 20110215
  Receipt Date: 20110208
  Transmission Date: 20110831
  Serious: Yes (Hospitalization)
  Sender: FDA-Public Use
  Company Number: 2011SP006019

PATIENT
  Age: 18 Year
  Sex: Female

DRUGS (3)
  1. ZOFRAN [Concomitant]
  2. IMPLANON [Suspect]
     Indication: CONTRACEPTION
     Dosage: 1 DF; SBDE
     Route: 059
     Dates: start: 20100401
  3. MORPHINE [Concomitant]

REACTIONS (1)
  - BILE DUCT STONE [None]
